FAERS Safety Report 5909529-8 (Version None)
Quarter: 2008Q4

REPORT INFORMATION
  Report Type: 
  Country: None (occurrence: None)
  Receive Date: 20081006
  Receipt Date: 20080929
  Transmission Date: 20090506
  Serious: Yes (Hospitalization)
  Sender: FDA-Public Use
  Company Number: GR-MERCK-0809USA05032

PATIENT
  Age: 43 Year
  Sex: Female

DRUGS (9)
  1. ZOCOR [Suspect]
     Route: 048
  2. CALCIUM (UNSPECIFIED) AND VITAMIN D (UNSPECIFIED) [Concomitant]
     Route: 065
  3. CYCLOPHOSPHAMIDE [Concomitant]
     Route: 065
  4. ENOXAPARIN SODIUM [Concomitant]
     Route: 065
  5. ESTROGENS (UNSPECIFIED) [Concomitant]
     Route: 065
  6. IRBESARTAN [Concomitant]
     Route: 065
  7. METHYLPREDNISOLONE [Concomitant]
     Route: 065
  8. PERINDOPRIL [Concomitant]
     Route: 065
  9. PROGESTERONE [Concomitant]
     Route: 065

REACTIONS (1)
  - AUTOIMMUNE HEPATITIS [None]
